FAERS Safety Report 20148343 (Version 1)
Quarter: 2021Q4

REPORT INFORMATION
  Report Type: Spontaneous
  Country: US (occurrence: US)
  Receive Date: 20211204
  Receipt Date: 20211204
  Transmission Date: 20220303
  Serious: No
  Sender: FDA-Public Use
  Company Number: US-NOVARTISTESTPH-NVSC2021US274502

PATIENT
  Sex: Female

DRUGS (2)
  1. PREDNISOLONE ACETATE [Suspect]
     Active Substance: PREDNISOLONE ACETATE
     Indication: Eye swelling
     Dosage: 1 %, (DAILY, EVERY 2 HOURS DURING THE DAY)
     Route: 047
     Dates: start: 202109
  2. PREDNISOLONE ACETATE [Suspect]
     Active Substance: PREDNISOLONE ACETATE
     Dosage: 1 %, (DAILY, EVERY 2 HOURS DURING THE DAY)
     Route: 047
     Dates: start: 202109

REACTIONS (3)
  - Back pain [Unknown]
  - Arthralgia [Unknown]
  - Vision blurred [Unknown]
